FAERS Safety Report 14133421 (Version 1)
Quarter: 2017Q4

REPORT INFORMATION
  Report Type: Spontaneous
  Country: US (occurrence: US)
  Receive Date: 20171026
  Receipt Date: 20171026
  Transmission Date: 20180321
  Serious: No
  Sender: FDA-Public Use
  Company Number: US-009507513-1710USA005768

PATIENT
  Sex: Female

DRUGS (1)
  1. PROVENTIL [Suspect]
     Active Substance: ALBUTEROL
     Dosage: UNK, AS NEEDED
     Route: 055

REACTIONS (3)
  - Product quality issue [Unknown]
  - No adverse event [Unknown]
  - Incorrect dose administered [Unknown]
